FAERS Safety Report 7285313-0 (Version None)
Quarter: 2011Q1

REPORT INFORMATION
  Report Type: 
  Country: None (occurrence: None)
  Receive Date: 20110210
  Receipt Date: 20110203
  Transmission Date: 20110831
  Serious: Yes (Hospitalization)
  Sender: FDA-Public Use
  Company Number: BR-ROCHE-752035

PATIENT
  Sex: Female
  Weight: 81.2 kg

DRUGS (2)
  1. HERCEPTIN [Suspect]
     Indication: BREAST CANCER
     Dosage: ROUTE: ENDOVENOUS.
     Route: 042
     Dates: start: 20100226, end: 20100101
  2. TAXOTERE [Suspect]
     Indication: BREAST CANCER
     Route: 065

REACTIONS (5)
  - NEUTROPENIA [None]
  - RASH [None]
  - HAEMORRHOIDS [None]
  - PRURITUS [None]
  - HAEMATOCHEZIA [None]
